FAERS Safety Report 4882967-0 (Version None)
Quarter: 2006Q1

REPORT INFORMATION
  Report Type: 
  Country: None (occurrence: None)
  Receive Date: 20060113
  Receipt Date: 20051222
  Transmission Date: 20060701
  Serious: Yes (Other)
  Sender: FDA-Public Use
  Company Number: SE200601000023

PATIENT
  Age: 44 Year
  Sex: Female

DRUGS (2)
  1. CYMBALTA [Suspect]
     Indication: DEPRESSION
     Dosage: 60 MG, DAILY (1/D), ORAL
     Route: 048
     Dates: start: 20051028, end: 20051222
  2. PROPAVAN (PROPIOMAZINE MALEATE) [Concomitant]

REACTIONS (2)
  - BREAST CYST [None]
  - VIRAL INFECTION [None]
